FAERS Safety Report 4277569-3 (Version None)
Quarter: 2004Q1

REPORT INFORMATION
  Report Type: 
  Country: None (occurrence: None)
  Receive Date: 20040121
  Receipt Date: 20040121
  Transmission Date: 20041129
  Serious: Yes (Hospitalization)
  Sender: FDA-Public Use
  Company Number: None

PATIENT
  Age: 70 Year
  Sex: Male
  Weight: 70.4 kg

DRUGS (7)
  1. CARBOPLATIN [Suspect]
  2. PACLITAXEL [Suspect]
     Indication: CARCINOMA
     Dosage: VARIOUSINTRAVENOUS
     Route: 042
  3. ETOPOSIDE [Suspect]
     Dosage: VARIOUSINTRAVEN
     Route: 042
  4. GOSERELIN CLINIC DOSE [Concomitant]
  5. ETOPOSIDE [Concomitant]
  6. NICOTINE [Concomitant]
  7. SILDENAFIL CITRATE [Concomitant]

REACTIONS (4)
  - DEHYDRATION [None]
  - DIARRHOEA [None]
  - NEUTROPENIA [None]
  - PYREXIA [None]
